FAERS Safety Report 6062760-6 (Version None)
Quarter: 2009Q1

REPORT INFORMATION
  Report Type: 
  Country: None (occurrence: None)
  Receive Date: 20090202
  Receipt Date: 20090202
  Transmission Date: 20090719
  Serious: Yes (Hospitalization)
  Sender: FDA-Public Use
  Company Number: None

PATIENT
  Age: 15 Year
  Sex: Female
  Weight: 66 kg

DRUGS (1)
  1. MINOCYCLINE [Suspect]
     Indication: ACNE
     Dosage: UNKNOWN  - ^RECENTLY^

REACTIONS (1)
  - BENIGN INTRACRANIAL HYPERTENSION [None]
